FAERS Safety Report 7146506-6 (Version None)
Quarter: 2010Q4

REPORT INFORMATION
  Report Type: 
  Country: None (occurrence: None)
  Receive Date: 20101208
  Receipt Date: 20101126
  Transmission Date: 20110411
  Serious: Yes (Life-Threatening, Hospitalization)
  Sender: FDA-Public Use
  Company Number: JP-PFIZER INC-JP-WYE-H18273810

PATIENT
  Age: 76 Year
  Sex: Female
  Weight: 49 kg

DRUGS (13)
  1. RHEUMATREX [Suspect]
     Indication: RHEUMATOID ARTHRITIS
     Dosage: 6 MG, 1X/WK
     Route: 048
     Dates: start: 20060101, end: 20090701
  2. RHEUMATREX [Suspect]
     Dosage: UNK
     Route: 048
     Dates: end: 20101009
  3. RHEUMATREX [Suspect]
     Dosage: UNK
     Route: 048
     Dates: end: 20101010
  4. LIPITOR [Suspect]
     Dosage: 10 MG, 1X/DAY
     Route: 048
     Dates: start: 20101014, end: 20101001
  5. AMARYL [Suspect]
     Dosage: 1 MG, 1X/DAY
     Route: 048
     Dates: end: 20101012
  6. GASTER [Suspect]
     Dosage: 20 MG, 1X/DAY
     Route: 048
     Dates: end: 20101014
  7. DIOVAN [Concomitant]
     Dosage: 80 MG, 2X/DAY
     Route: 048
  8. NATRIX [Concomitant]
     Dosage: 1 DF, 1X/DAY
     Route: 048
  9. SELBEX [Concomitant]
     Dosage: 50 MG, 3X/DAY
     Route: 048
  10. PREDNISOLONE [Concomitant]
     Indication: RHEUMATOID ARTHRITIS
     Dosage: 1 MG, 1X/DAY
     Route: 048
  11. EURODIN [Concomitant]
     Dosage: 1 MG, 1X/DAY
     Route: 048
  12. AMLODIN [Concomitant]
     Dosage: 5 MG, 2X/DAY
     Route: 048
     Dates: end: 20101018
  13. FOLIAMIN [Concomitant]
     Dosage: 5 MG, 1X/DAY
     Route: 048
     Dates: end: 20101019

REACTIONS (2)
  - PANCYTOPENIA [None]
  - PYREXIA [None]
